FAERS Safety Report 8114975-0 (Version None)
Quarter: 2012Q1

REPORT INFORMATION
  Report Type: 
  Country: None (occurrence: None)
  Receive Date: 20120206
  Receipt Date: 20120126
  Transmission Date: 20120608
  Serious: Yes (Other)
  Sender: FDA-Public Use
  Company Number: RU-BRISTOL-MYERS SQUIBB COMPANY-16370603

PATIENT
  Age: 40 Year
  Sex: Female

DRUGS (2)
  1. ENTECAVIR TABS [Suspect]
     Indication: HEPATITIS B
     Dates: start: 20110801
  2. OMEPRAZOLE [Concomitant]
     Indication: GASTRITIS

REACTIONS (1)
  - PAIN IN EXTREMITY [None]
